FAERS Safety Report 16992646 (Version 1)
Quarter: 2019Q4

REPORT INFORMATION
  Report Type: Spontaneous
  Country: US (occurrence: US)
  Receive Date: 20191105
  Receipt Date: 20191105
  Transmission Date: 20200122
  Serious: No
  Sender: FDA-Public Use
  Company Number: US-LUPIN PHARMACEUTICALS INC.-2019-00500

PATIENT
  Sex: Male

DRUGS (3)
  1. CEFTRIAXONE FOR INJECTION USP, 250 MG [Suspect]
     Active Substance: CEFTRIAXONE
     Dosage: UNK, 23 GAUGE NEEDLE
     Route: 030
     Dates: start: 20181210
  2. CEFTRIAXONE FOR INJECTION USP, 250 MG [Suspect]
     Active Substance: CEFTRIAXONE
     Indication: PRODUCT USED FOR UNKNOWN INDICATION
     Dosage: UNK, 23 GAUGE NEEDLE
     Route: 030
     Dates: start: 20181207
  3. CEFTRIAXONE FOR INJECTION USP, 250 MG [Suspect]
     Active Substance: CEFTRIAXONE
     Dosage: UNK, 23 GAUGE NEEDLE
     Route: 030
     Dates: start: 20181208

REACTIONS (2)
  - Recalled product administered [Unknown]
  - No adverse event [Unknown]
